FAERS Safety Report 8154797-8 (Version None)
Quarter: 2012Q1

REPORT INFORMATION
  Report Type: 
  Country: None (occurrence: None)
  Receive Date: 20120221
  Receipt Date: 20120210
  Transmission Date: 20120608
  Serious: Yes (Hospitalization)
  Sender: FDA-Public Use
  Company Number: PHHY2012AR012360

PATIENT
  Sex: Female

DRUGS (2)
  1. EXFORGE [Suspect]
     Indication: HYPERTENSION
     Dosage: 2 DF X (160/5 MG), DAILY
  2. DIOVAN [Suspect]
     Indication: HYPERTENSION
     Dosage: 160 MG, ONE TABLET DAILY

REACTIONS (1)
  - UTERINE PROLAPSE [None]
